FAERS Safety Report 21566396 (Version 3)
Quarter: 2022Q4

REPORT INFORMATION
  Report Type: Report from Study
  Country: CA (occurrence: CA)
  Receive Date: 20221108
  Receipt Date: 20221122
  Transmission Date: 20230112
  Serious: Yes (Hospitalization, Other)
  Sender: FDA-Public Use
  Company Number: CA-002147023-NVSC2016CA009616

PATIENT
  Age: 43 Year
  Sex: Female

DRUGS (17)
  1. SANDOSTATIN [Suspect]
     Active Substance: OCTREOTIDE ACETATE
     Indication: Carcinoid tumour
     Dosage: UNK, BID
     Route: 058
     Dates: start: 201405, end: 201405
  2. SANDOSTATIN [Suspect]
     Active Substance: OCTREOTIDE ACETATE
     Indication: Pancreatic neuroendocrine tumour
  3. SANDOSTATIN [Suspect]
     Active Substance: OCTREOTIDE ACETATE
  4. SANDOSTATIN LAR DEPOT [Suspect]
     Active Substance: OCTREOTIDE ACETATE
     Indication: Carcinoid tumour
     Dosage: 10 MG, EVERY 15 DAYS
     Route: 030
     Dates: start: 20160708
  5. SANDOSTATIN LAR DEPOT [Suspect]
     Active Substance: OCTREOTIDE ACETATE
     Indication: Pancreatic neuroendocrine tumour
     Dosage: 20 MG, Q2W
     Route: 030
     Dates: start: 20160708, end: 20210126
  6. SANDOSTATIN LAR DEPOT [Suspect]
     Active Substance: OCTREOTIDE ACETATE
     Dosage: 30 MG, Q2W
     Route: 030
     Dates: start: 20160708, end: 20220217
  7. SANDOSTATIN LAR DEPOT [Suspect]
     Active Substance: OCTREOTIDE ACETATE
     Dosage: 30 MG, Q4W
     Route: 030
     Dates: start: 20160810, end: 20160810
  8. SANDOSTATIN LAR DEPOT [Suspect]
     Active Substance: OCTREOTIDE ACETATE
     Dosage: 10 MG, Q2W
     Route: 030
     Dates: start: 20160912, end: 20170208
  9. SANDOSTATIN LAR DEPOT [Suspect]
     Active Substance: OCTREOTIDE ACETATE
     Dosage: 20 MG, Q2W
     Route: 030
     Dates: start: 20170222
  10. SANDOSTATIN LAR DEPOT [Suspect]
     Active Substance: OCTREOTIDE ACETATE
     Dosage: 20 MG, Q2W
     Route: 030
     Dates: start: 20190711, end: 20210126
  11. SANDOSTATIN LAR DEPOT [Suspect]
     Active Substance: OCTREOTIDE ACETATE
     Dosage: 30 MG, Q2W
     Route: 030
     Dates: start: 20210209, end: 20220217
  12. SANDOSTATIN LAR DEPOT [Suspect]
     Active Substance: OCTREOTIDE ACETATE
     Dosage: 30 MG, Q2W (VIAL)
     Route: 030
     Dates: start: 20220407
  13. PROCAINE [Suspect]
     Active Substance: PROCAINE
     Indication: Product used for unknown indication
     Dosage: UNK
     Route: 065
  14. OXYCODONE [Concomitant]
     Active Substance: OXYCODONE
     Indication: Product used for unknown indication
     Dosage: UNK UNK, PRN
     Route: 065
  15. VITAMIN C [Concomitant]
     Active Substance: ASCORBIC ACID
     Indication: Product used for unknown indication
     Dosage: UNK, PRN
     Route: 065
  16. CREON [Concomitant]
     Active Substance: PANCRELIPASE AMYLASE\PANCRELIPASE LIPASE\PANCRELIPASE PROTEASE
     Indication: Product used for unknown indication
     Dosage: 10 MINIMICROSPHERES DR/EC
     Route: 048
  17. LANREOTIDE [Concomitant]
     Active Substance: LANREOTIDE
     Indication: Product used for unknown indication
     Dosage: UNK
     Route: 065
     Dates: start: 202203

REACTIONS (65)
  - Weight decreased [Unknown]
  - Intestinal obstruction [Recovered/Resolved]
  - Intestinal obstruction [Unknown]
  - Syncope [Unknown]
  - Intestinal obstruction [Recovered/Resolved]
  - Neoplasm progression [Unknown]
  - Intestinal obstruction [Recovered/Resolved]
  - Serum serotonin decreased [Unknown]
  - Feeling abnormal [Unknown]
  - Palpitations [Recovering/Resolving]
  - Muscle tightness [Recovering/Resolving]
  - Hypoaesthesia [Recovering/Resolving]
  - Paraesthesia [Recovering/Resolving]
  - Eating disorder [Recovering/Resolving]
  - Gastric dilatation [Recovering/Resolving]
  - Insomnia [Recovered/Resolved]
  - Malaise [Recovered/Resolved]
  - Nocturia [Unknown]
  - Migraine [Unknown]
  - Body temperature decreased [Unknown]
  - Anxiety [Unknown]
  - Menstruation irregular [Unknown]
  - Weight abnormal [Unknown]
  - Neck pain [Unknown]
  - Arthralgia [Unknown]
  - Blood pressure decreased [Unknown]
  - Nasopharyngitis [Unknown]
  - Hyperhidrosis [Unknown]
  - Viral infection [Unknown]
  - Joint stiffness [Unknown]
  - Hypersensitivity [Unknown]
  - Balance disorder [Unknown]
  - Salivary hypersecretion [Unknown]
  - Stress urinary incontinence [Unknown]
  - Micturition urgency [Unknown]
  - Nerve injury [Unknown]
  - Pain in extremity [Unknown]
  - Pain [Unknown]
  - Bone pain [Unknown]
  - Blood pressure diastolic increased [Unknown]
  - Fatigue [Unknown]
  - Dizziness [Unknown]
  - Nausea [Recovered/Resolved]
  - Headache [Recovered/Resolved]
  - Headache [Unknown]
  - Abdominal pain [Recovered/Resolved]
  - Abdominal pain [Unknown]
  - Flatulence [Recovered/Resolved]
  - Abdominal distension [Recovered/Resolved]
  - Abdominal pain upper [Recovered/Resolved]
  - Blood pressure systolic increased [Unknown]
  - Blood pressure diastolic decreased [Unknown]
  - Diarrhoea [Recovered/Resolved]
  - Diarrhoea [Unknown]
  - Asthenia [Unknown]
  - Nausea [Unknown]
  - Injection site mass [Unknown]
  - Injection site pain [Unknown]
  - Injection site reaction [Unknown]
  - Injection site swelling [Unknown]
  - Injection site erythema [Unknown]
  - Injection site warmth [Unknown]
  - Injection site scar [Unknown]
  - Wrong technique in device usage process [Unknown]
  - Inappropriate schedule of product administration [Unknown]

NARRATIVE: CASE EVENT DATE: 20091128
